FAERS Safety Report 6554149-8 (Version None)
Quarter: 2010Q1

REPORT INFORMATION
  Report Type: 
  Country: None (occurrence: None)
  Receive Date: 20100125
  Receipt Date: 20100125
  Transmission Date: 20100710
  Serious: Yes (Other)
  Sender: FDA-Public Use
  Company Number: None

PATIENT
  Sex: Female

DRUGS (1)
  1. ALLI [Suspect]

REACTIONS (20)
  - ABDOMINAL DISTENSION [None]
  - ACTIVITIES OF DAILY LIVING IMPAIRED [None]
  - BACK PAIN [None]
  - CONSTIPATION [None]
  - DEFAECATION URGENCY [None]
  - DISCOMFORT [None]
  - FATIGUE [None]
  - FEAR OF WEIGHT GAIN [None]
  - FLATULENCE [None]
  - GALLBLADDER DISORDER [None]
  - GASTROINTESTINAL SOUNDS ABNORMAL [None]
  - INJURY [None]
  - LETHARGY [None]
  - MICTURITION URGENCY [None]
  - PAIN [None]
  - PAIN IN EXTREMITY [None]
  - STEATORRHOEA [None]
  - TENDERNESS [None]
  - TOBACCO USER [None]
  - WEIGHT LOSS POOR [None]
